FAERS Safety Report 17506632 (Version 1)
Quarter: 2020Q1

REPORT INFORMATION
  Report Type: Spontaneous
  Country: US (occurrence: US)
  Receive Date: 20200306
  Receipt Date: 20200306
  Transmission Date: 20200409
  Serious: No
  Sender: FDA-Public Use
  Company Number: US-ASTRAZENECA-2020SE21363

PATIENT
  Sex: Female
  Weight: 81.6 kg

DRUGS (7)
  1. SYMBICORT [Suspect]
     Active Substance: BUDESONIDE\FORMOTEROL FUMARATE DIHYDRATE
     Indication: VIRAL INFECTION
     Dosage: 80/4.5 2 PUFFS BID
     Route: 055
  2. ALBUTEROL INHALER [Concomitant]
     Active Substance: ALBUTEROL
     Indication: COUGH
     Dosage: AS REQUIRED
  3. CYMBALTA [Concomitant]
     Active Substance: DULOXETINE HYDROCHLORIDE
     Indication: PAIN
  4. CYMBALTA [Concomitant]
     Active Substance: DULOXETINE HYDROCHLORIDE
     Indication: DEPRESSION
  5. PANTAPROZOLE [Concomitant]
     Active Substance: PANTOPRAZOLE SODIUM
     Indication: HIATUS HERNIA
  6. SYMBICORT [Suspect]
     Active Substance: BUDESONIDE\FORMOTEROL FUMARATE DIHYDRATE
     Indication: CHRONIC OBSTRUCTIVE PULMONARY DISEASE
     Dosage: 80/4.5 2 PUFFS BID
     Route: 055
  7. FLUTICAZONE [Concomitant]
     Indication: SEASONAL ALLERGY

REACTIONS (7)
  - Fatigue [Unknown]
  - Asthenia [Unknown]
  - Rash [Unknown]
  - Inflammation [Unknown]
  - Pain [Unknown]
  - Flatulence [Unknown]
  - Circumstance or information capable of leading to medication error [Unknown]
